FAERS Safety Report 6967864-9 (Version None)
Quarter: 2010Q3

REPORT INFORMATION
  Report Type: 
  Country: None (occurrence: None)
  Receive Date: 20100907
  Receipt Date: 20100519
  Transmission Date: 20110219
  Serious: No
  Sender: FDA-Public Use
  Company Number: A0853362A

PATIENT
  Sex: Female

DRUGS (3)
  1. REQUIP XL [Suspect]
     Indication: PARKINSON'S DISEASE
     Dosage: 12MG PER DAY
     Dates: start: 20080814
  2. METOPROLOL TARTRATE [Concomitant]
  3. SINEMET CR [Concomitant]

REACTIONS (3)
  - DRUG EFFECT DECREASED [None]
  - MEDICATION RESIDUE [None]
  - PRODUCT QUALITY ISSUE [None]
